FAERS Safety Report 10176445 (Version 3)
Quarter: 2014Q2

REPORT INFORMATION
  Report Type: Spontaneous
  Country: JP (occurrence: JP)
  Receive Date: 20140516
  Receipt Date: 20140609
  Transmission Date: 20141212
  Serious: Yes (Other)
  Sender: FDA-Public Use
  Company Number: JP-NOVOPROD-409601

PATIENT
  Sex: Female
  Weight: 68 kg

DRUGS (3)
  1. VICTOZA HIKACHU INJECTION [Suspect]
     Indication: TYPE 2 DIABETES MELLITUS
     Dosage: 0.3 MG, QD
     Route: 058
     Dates: start: 20111021
  2. VICTOZA HIKACHU INJECTION [Suspect]
     Dosage: 0.6 MG, QD
     Route: 058
     Dates: start: 20111028
  3. VICTOZA HIKACHU INJECTION [Suspect]
     Dosage: 0.9 MG, QD
     Route: 058
     Dates: start: 20111103, end: 201304

REACTIONS (1)
  - Ventricular arrhythmia [Recovered/Resolved]
